FAERS Safety Report 7442141-0 (Version None)
Quarter: 2011Q2

REPORT INFORMATION
  Report Type: 
  Country: None (occurrence: None)
  Receive Date: 20110428
  Receipt Date: 20110415
  Transmission Date: 20111010
  Serious: Yes (Other)
  Sender: FDA-Public Use
  Company Number: PHHY2010CA73140

PATIENT
  Sex: Male

DRUGS (2)
  1. EXJADE [Suspect]
     Indication: MYELODYSPLASTIC SYNDROME
     Dosage: 1500 MG, QD
     Route: 048
     Dates: start: 20101101
  2. ZANTAC [Concomitant]

REACTIONS (4)
  - ANGINA PECTORIS [None]
  - BRONCHITIS [None]
  - DIARRHOEA [None]
  - SERUM FERRITIN ABNORMAL [None]
